FAERS Safety Report 10649702 (Version 1)
Quarter: 2014Q4

REPORT INFORMATION
  Report Type: Other
  Country: NL (occurrence: NL)
  Receive Date: 20141212
  Receipt Date: 20141212
  Transmission Date: 20150529
  Serious: Yes (Life-Threatening, Hospitalization)
  Sender: FDA-Public Use
  Company Number: NL-ASTELLAS-2014US019744

PATIENT
  Age: 50 Year
  Sex: Male
  Weight: 58 kg

DRUGS (6)
  1. VESICARE [Suspect]
     Active Substance: SOLIFENACIN SUCCINATE
     Indication: BLADDER PAIN
     Route: 065
     Dates: start: 20140910, end: 20141128
  2. PROPRANOLOL [Interacting]
     Active Substance: PROPRANOLOL\PROPRANOLOL HYDROCHLORIDE
     Indication: PRODUCT USED FOR UNKNOWN INDICATION
     Route: 065
     Dates: start: 19910101
  3. DICLOFENAC [Concomitant]
     Active Substance: DICLOFENAC
     Indication: PRODUCT USED FOR UNKNOWN INDICATION
     Route: 065
     Dates: start: 20140801, end: 20141116
  4. LAXEERDRANK LACTULOSE [Interacting]
     Active Substance: LACTULOSE
     Indication: CONSTIPATION
     Dosage: 667 MG/ML, 1 DF
     Route: 065
     Dates: start: 20140810
  5. OMEPRAZOL                          /00661201/ [Interacting]
     Active Substance: OMEPRAZOLE
     Indication: GASTROOESOPHAGEAL REFLUX DISEASE
     Dates: start: 20010401
  6. VESICARE [Suspect]
     Active Substance: SOLIFENACIN SUCCINATE
     Indication: BLADDER PAIN
     Route: 065
     Dates: start: 20140910, end: 20141128

REACTIONS (4)
  - Mental disability [Not Recovered/Not Resolved]
  - Constipation [Not Recovered/Not Resolved]
  - Colitis [Not Recovered/Not Resolved]
  - Delirium [Not Recovered/Not Resolved]

NARRATIVE: CASE EVENT DATE: 20140910
